FAERS Safety Report 8887410 (Version 1)
Quarter: 2012Q4

REPORT INFORMATION
  Report Type: 
  Country: US (occurrence: US)
  Receive Date: 20121105
  Receipt Date: 20121105
  Transmission Date: 20130627
  Serious: No
  Sender: FDA-Public Use
  Company Number: US-PFIZER INC-2012273838

PATIENT
  Age: 56 Year
  Sex: Male
  Weight: 71.2 kg

DRUGS (14)
  1. SUTENT [Suspect]
     Indication: METASTATIC RENAL CARCINOMA
     Dosage: 62.5mg (50+12.5mg), UNK
     Dates: start: 20121015, end: 20121019
  2. NYSTATIN [Concomitant]
     Dosage: QID
  3. ANCEF [Concomitant]
     Dosage: Q8hrs
     Route: 042
  4. INSULIN [Concomitant]
     Dosage: according to sliding scale
  5. SENOKOT [Concomitant]
     Indication: LAXATIVE SUPPORTIVE CARE
     Dosage: 25.8 mg, BID
  6. COLACE [Concomitant]
     Dosage: BID
  7. NEURONTIN [Concomitant]
     Dosage: 300 mg, TID
  8. NEXIUM [Concomitant]
     Dosage: 20 mg, Daily
  9. LASIX [Concomitant]
     Dosage: 40 mg, Daily
     Route: 048
  10. LOPRESSOR [Concomitant]
     Dosage: 75 mg, BID
  11. LISINOPRIL [Concomitant]
     Dosage: 40 mg, Daily
  12. METHADONE [Concomitant]
     Dosage: 10 mg, Q12hrs
  13. DILAUDID [Concomitant]
     Dosage: 8-16 mg, as needed Q2hrs
     Route: 048
  14. DECADRON [Concomitant]
     Dosage: 1 mg, 2x/day

REACTIONS (2)
  - Intentional overdose [Unknown]
  - Oedema peripheral [Recovering/Resolving]
